FAERS Safety Report 7831784-8 (Version None)
Quarter: 2011Q4

REPORT INFORMATION
  Report Type: 
  Country: None (occurrence: None)
  Receive Date: 20111021
  Receipt Date: 20111019
  Transmission Date: 20120403
  Serious: Yes (Other)
  Sender: FDA-Public Use
  Company Number: US-PFIZER INC-2011203231

PATIENT
  Sex: Female

DRUGS (1)
  1. LATANOPROST [Suspect]
     Indication: GLAUCOMA
     Dosage: UNK

REACTIONS (5)
  - VISUAL IMPAIRMENT [None]
  - EYE IRRITATION [None]
  - EYE DISORDER [None]
  - VISUAL ACUITY REDUCED [None]
  - HYPERAEMIA [None]
